FAERS Safety Report 16867801 (Version 1)
Quarter: 2019Q3

REPORT INFORMATION
  Report Type: Spontaneous
  Country: CH (occurrence: CH)
  Receive Date: 20190930
  Receipt Date: 20190930
  Transmission Date: 20191005
  Serious: Yes (Other)
  Sender: FDA-Public Use
  Company Number: CH-AMERICAN REGENT INC-2019002120

PATIENT

DRUGS (1)
  1. FERINJECT [Suspect]
     Active Substance: FERRIC CARBOXYMALTOSE
     Indication: IRON DEFICIENCY
     Dosage: UNK (1 TOTAL)
     Dates: start: 20190913, end: 20190913

REACTIONS (7)
  - Abdominal pain upper [Recovering/Resolving]
  - Loss of consciousness [Not Recovered/Not Resolved]
  - Dysgeusia [Recovering/Resolving]
  - Nausea [Not Recovered/Not Resolved]
  - Feeling abnormal [Not Recovered/Not Resolved]
  - Diarrhoea [Recovering/Resolving]
  - Hypotonia [Not Recovered/Not Resolved]

NARRATIVE: CASE EVENT DATE: 201909
